FAERS Safety Report 4832901-4 (Version None)
Quarter: 2005Q4

REPORT INFORMATION
  Report Type: 
  Country: None (occurrence: None)
  Receive Date: 20051121
  Receipt Date: 20051118
  Transmission Date: 20060501
  Serious: Yes (Other)
  Sender: FDA-Public Use
  Company Number: NL-GLAXOSMITHKLINE-B0401072A

PATIENT

DRUGS (3)
  1. LANOXIN [Suspect]
     Dates: start: 20051111
  2. LAMOTRIGINE [Suspect]
  3. ACENOCOUMAROL [Suspect]
     Dates: start: 20051111

REACTIONS (2)
  - DRUG INTERACTION [None]
  - EPILEPSY [None]
